FAERS Safety Report 5351205-7 (Version None)
Quarter: 2007Q2

REPORT INFORMATION
  Report Type: 
  Country: None (occurrence: None)
  Receive Date: 20070608
  Receipt Date: 20070529
  Transmission Date: 20071010
  Serious: Yes (Other)
  Sender: FDA-Public Use
  Company Number: FR-PFIZER INC-2007043380

PATIENT
  Age: 58 Year
  Sex: Male

DRUGS (1)
  1. ZYVOX [Suspect]
     Indication: PNEUMONIA

REACTIONS (1)
  - LEUKOCYTOSIS [None]
